FAERS Safety Report 24614410 (Version 2)
Quarter: 2024Q4

REPORT INFORMATION
  Report Type: Spontaneous
  Country: GB (occurrence: GB)
  Receive Date: 20241113
  Receipt Date: 20241209
  Transmission Date: 20250114
  Serious: Yes (Hospitalization)
  Sender: INCYTE
  Company Number: GB-002147023-NVSC2024GB216817

PATIENT

DRUGS (1)
  1. RUXOLITINIB [Suspect]
     Active Substance: RUXOLITINIB
     Indication: Neoplasm malignant
     Dosage: 20 MG, BID (BLISTER)
     Route: 048
     Dates: start: 20220725

REACTIONS (1)
  - Neutropenic sepsis [Unknown]
